FAERS Safety Report 9160672 (Version 2)
Quarter: 2013Q2

REPORT INFORMATION
  Report Type: Spontaneous
  Country: NL (occurrence: None)
  Receive Date: 20130219
  Receipt Date: 20130603
  Transmission Date: 20140414
  Serious: Yes (Other)
  Sender: FDA-Public Use
  Company Number: ADR-2013-00266

PATIENT
  Sex: Female

DRUGS (1)
  1. BACLOFEN [Suspect]
     Indication: COMPLEX REGIONAL PAIN SYNDROME
     Dosage: MEAN 725 MCG/DAY
     Route: 037

REACTIONS (2)
  - Implant site ulcer [None]
  - Exposure during pregnancy [None]
